FAERS Safety Report 6714454-9 (Version None)
Quarter: 2010Q2

REPORT INFORMATION
  Report Type: 
  Country: None (occurrence: None)
  Receive Date: 20100506
  Receipt Date: 20100503
  Transmission Date: 20101027
  Serious: Yes (Other)
  Sender: FDA-Public Use
  Company Number: PT-MERCK-1005PRT00001

PATIENT
  Age: 61 Year
  Sex: Male
  Weight: 72 kg

DRUGS (7)
  1. JANUMET [Suspect]
     Indication: TYPE 2 DIABETES MELLITUS
     Route: 048
     Dates: start: 20100122, end: 20100129
  2. OLMESARTAN MEDOXOMIL [Concomitant]
     Indication: HYPERTENSION
     Route: 065
  3. HYDROCHLOROTHIAZIDE [Concomitant]
     Indication: HYPERTENSION
     Route: 065
  4. METFORMIN HYDROCHLORIDE [Concomitant]
     Indication: TYPE 2 DIABETES MELLITUS
     Route: 065
  5. SIMVASTATIN [Concomitant]
     Indication: DYSLIPIDAEMIA
     Route: 065
  6. CETIRIZINE HYDROCHLORIDE [Concomitant]
     Indication: MULTIPLE ALLERGIES
     Route: 065
  7. ASPIRIN [Concomitant]
     Indication: CARDIOVASCULAR DISORDER
     Route: 065

REACTIONS (3)
  - PRURITUS [None]
  - RASH MACULO-PAPULAR [None]
  - TONGUE OEDEMA [None]
